FAERS Safety Report 6562744-5 (Version None)
Quarter: 2010Q1

REPORT INFORMATION
  Report Type: 
  Country: None (occurrence: None)
  Receive Date: 20100130
  Receipt Date: 20091209
  Transmission Date: 20100710
  Serious: No
  Sender: FDA-Public Use
  Company Number: US-ABBOTT-09P-163-0610122-00

PATIENT
  Sex: Female
  Weight: 49.94 kg

DRUGS (8)
  1. HUMIRA [Suspect]
     Indication: CROHN'S DISEASE
     Route: 058
     Dates: start: 20090501
  2. HUMIRA [Suspect]
     Route: 058
  3. CARDIZEM [Concomitant]
     Indication: DRUG USE FOR UNKNOWN INDICATION
  4. ATENOLOL [Concomitant]
     Indication: TACHYCARDIA
  5. ENTOCORT EC [Concomitant]
     Indication: CROHN'S DISEASE
  6. MERCAPTOPURINE [Concomitant]
     Indication: CROHN'S DISEASE
     Dates: start: 20091001
  7. PENTASA [Concomitant]
     Indication: CROHN'S DISEASE
  8. IRON INFUSIONS [Concomitant]
     Indication: ANAEMIA
     Dosage: SERIES OF 21 INJECTIONS
     Dates: start: 20090501

REACTIONS (3)
  - CROHN'S DISEASE [None]
  - FATIGUE [None]
  - MALAISE [None]
